FAERS Safety Report 5031458-5 (Version None)
Quarter: 2006Q2

REPORT INFORMATION
  Report Type: 
  Country: None (occurrence: None)
  Receive Date: 20060621
  Receipt Date: 20060606
  Transmission Date: 20061013
  Serious: Yes (Death)
  Sender: FDA-Public Use
  Company Number: JP-BRISTOL-MYERS SQUIBB COMPANY-13403282

PATIENT
  Age: 81 Year
  Sex: Male

DRUGS (3)
  1. PARAPLATIN [Suspect]
     Indication: LUNG NEOPLASM MALIGNANT
     Route: 041
     Dates: start: 20060327, end: 20060327
  2. TAXOL [Suspect]
     Indication: LUNG NEOPLASM MALIGNANT
     Route: 041
     Dates: start: 20060327, end: 20060410
  3. SULPERAZON [Concomitant]
     Route: 042
     Dates: start: 20060412, end: 20060416

REACTIONS (3)
  - CARDIO-RESPIRATORY ARREST [None]
  - ILEUS PARALYTIC [None]
  - MALIGNANT NEOPLASM PROGRESSION [None]
